FAERS Safety Report 5092641-6 (Version None)
Quarter: 2006Q3

REPORT INFORMATION
  Report Type: 
  Country: None (occurrence: None)
  Receive Date: 20060830
  Receipt Date: 20060818
  Transmission Date: 20061208
  Serious: Yes (Other)
  Sender: FDA-Public Use
  Company Number: PHNR2006AU01069

PATIENT
  Sex: Male

DRUGS (1)
  1. CLOZARIL [Suspect]
     Dosage: 125 MG, ONCE/SINGLE
     Route: 048

REACTIONS (3)
  - ACCIDENTAL EXPOSURE [None]
  - PSYCHOTIC DISORDER [None]
  - WRONG DRUG ADMINISTERED [None]
